FAERS Safety Report 18166660 (Version 1)
Quarter: 2020Q3

REPORT INFORMATION
  Report Type: Spontaneous
  Country: US (occurrence: US)
  Receive Date: 20200819
  Receipt Date: 20200819
  Transmission Date: 20201103
  Serious: No
  Sender: FDA-Public Use
  Company Number: US-SPECGX-T202001173

PATIENT
  Age: 60 Year
  Sex: Female
  Weight: 70 kg

DRUGS (2)
  1. MORPHINE [Suspect]
     Active Substance: MORPHINE
     Indication: PAIN
     Dosage: UNK
     Route: 048
  2. FENTANYL TRANSDERMAL SYSTEM [Suspect]
     Active Substance: FENTANYL
     Indication: PAIN
     Dosage: 12 MICROGRAM
     Route: 062
     Dates: start: 20200604, end: 20200615

REACTIONS (3)
  - Weight decreased [Unknown]
  - Drug hypersensitivity [Unknown]
  - Urticaria [Unknown]

NARRATIVE: CASE EVENT DATE: 202006
